FAERS Safety Report 8444025 (Version 4)
Quarter: 2014Q4

REPORT INFORMATION
  Report Type: Spontaneous
  Country: FR (occurrence: None)
  Receive Date: 20120228
  Receipt Date: 20141105
  Transmission Date: 20150529
  Serious: Yes (Hospitalization, Other)
  Sender: FDA-Public Use
  Company Number: JPI-P-002633

PATIENT
  Age: 62 Year
  Sex: Male
  Weight: 103 kg

DRUGS (4)
  1. ACARBOSE (ACARBOSE) [Concomitant]
  2. XYREM [Suspect]
     Active Substance: SODIUM OXYBATE
     Indication: DYSSOMNIA
     Route: 048
     Dates: start: 20070927
  3. PIOGLITAZONE (PIOGLITAZONE) [Concomitant]
     Active Substance: PIOGLITAZONE
  4. XYREM [Suspect]
     Active Substance: SODIUM OXYBATE
     Indication: NARCOLEPSY
     Route: 048
     Dates: start: 20070927

REACTIONS (8)
  - Pruritus [None]
  - Carpal tunnel syndrome [None]
  - Dry skin [None]
  - Sleep apnoea syndrome [None]
  - Prosthesis implantation [None]
  - Diabetes mellitus [None]
  - Middle insomnia [None]
  - Muscle spasms [None]

NARRATIVE: CASE EVENT DATE: 20070927
